FAERS Safety Report 9471738 (Version 1)
Quarter: 2013Q3

REPORT INFORMATION
  Report Type: Report from Study
  Country: US (occurrence: US)
  Receive Date: 20130822
  Receipt Date: 20130822
  Transmission Date: 20140515
  Serious: Yes (Other)
  Sender: FDA-Public Use
  Company Number: US-GLAXOSMITHKLINE-A0975347A

PATIENT
  Age: 61 Year
  Sex: Female
  Weight: 72.3 kg

DRUGS (2)
  1. GSK1120212 [Suspect]
     Indication: METASTATIC MALIGNANT MELANOMA
     Dosage: 1MG PER DAY
     Route: 048
     Dates: start: 20100802
  2. GSK2118436 [Suspect]
     Indication: METASTATIC MALIGNANT MELANOMA
     Dosage: 150MG TWICE PER DAY
     Route: 048
     Dates: start: 20100802

REACTIONS (4)
  - Squamous cell carcinoma of skin [Recovered/Resolved]
  - Squamous cell carcinoma of skin [Recovered/Resolved]
  - Squamous cell carcinoma of skin [Recovered/Resolved]
  - Squamous cell carcinoma [Recovered/Resolved]
